FAERS Safety Report 5075297-8 (Version None)
Quarter: 2006Q3

REPORT INFORMATION
  Report Type: 
  Country: None (occurrence: None)
  Receive Date: 20060809
  Receipt Date: 20060119
  Transmission Date: 20061208
  Serious: No
  Sender: FDA-Public Use
  Company Number: US-AMGEN-US165799

PATIENT
  Sex: Female
  Weight: 26.8 kg

DRUGS (1)
  1. EPOGEN [Suspect]
     Indication: DIALYSIS
     Route: 058
     Dates: start: 20050401

REACTIONS (2)
  - INJECTION SITE PAIN [None]
  - MEDICATION ERROR [None]
